FAERS Safety Report 5979657-X (Version None)
Quarter: 2008Q4

REPORT INFORMATION
  Report Type: 
  Country: None (occurrence: None)
  Receive Date: 20081204
  Receipt Date: 20081125
  Transmission Date: 20090506
  Serious: Yes (Hospitalization)
  Sender: FDA-Public Use
  Company Number: FR-WATSON-2008-07030

PATIENT
  Age: 41 Year
  Sex: Female

DRUGS (1)
  1. MONODOX [Suspect]
     Indication: ACNE
     Dosage: X ALMOST TWO WEEKS

REACTIONS (1)
  - ACUTE FEBRILE NEUTROPHILIC DERMATOSIS [None]
